FAERS Safety Report 10399979 (Version 1)
Quarter: 2014Q3

REPORT INFORMATION
  Report Type: Spontaneous
  Country: DE (occurrence: DE)
  Receive Date: 20140821
  Receipt Date: 20140821
  Transmission Date: 20150326
  Serious: Yes (Life-Threatening)
  Sender: FDA-Public Use
  Company Number: DE-TEVA-503037GER

PATIENT
  Age: 61 Year
  Sex: Male
  Weight: 70 kg

DRUGS (1)
  1. HALOPERIDOL. [Suspect]
     Active Substance: HALOPERIDOL
     Indication: DELIRIUM TREMENS
     Route: 042
     Dates: start: 20140808, end: 20140808

REACTIONS (3)
  - Electrocardiogram QT prolonged [Unknown]
  - Torsade de pointes [Unknown]
  - Resuscitation [Unknown]

NARRATIVE: CASE EVENT DATE: 20140808
